FAERS Safety Report 24531673 (Version 1)
Quarter: 2024Q4

REPORT INFORMATION
  Report Type: Report from Study
  Country: US (occurrence: US)
  Receive Date: 20241022
  Receipt Date: 20241022
  Transmission Date: 20250114
  Serious: No
  Sender: ROCHE
  Company Number: US-ROCHE-3556509

PATIENT
  Age: 69 Year
  Sex: Female

DRUGS (7)
  1. PULMOZYME [Suspect]
     Active Substance: DORNASE ALFA
     Indication: Chronic respiratory failure
     Dosage: NEBULIZE THE CONTENTS OF 1 VIAL TWICE A DAY
     Route: 065
  2. PULMOZYME [Suspect]
     Active Substance: DORNASE ALFA
     Indication: Pulmonary hypertension
  3. PULMOZYME [Suspect]
     Active Substance: DORNASE ALFA
     Indication: Chronic obstructive pulmonary disease
  4. PULMOZYME [Suspect]
     Active Substance: DORNASE ALFA
     Indication: Parkinson^s disease
  5. PULMOZYME [Suspect]
     Active Substance: DORNASE ALFA
     Indication: Pulmonary embolism
  6. PULMOZYME [Suspect]
     Active Substance: DORNASE ALFA
     Indication: Dyspnoea
  7. PULMOZYME [Suspect]
     Active Substance: DORNASE ALFA
     Indication: Hypoxia

REACTIONS (3)
  - Blister [Unknown]
  - Off label use [Unknown]
  - Skin exfoliation [Unknown]
